FAERS Safety Report 25628694 (Version 1)
Quarter: 2025Q3

REPORT INFORMATION
  Report Type: Spontaneous
  Country: US (occurrence: US)
  Receive Date: 20250731
  Receipt Date: 20250731
  Transmission Date: 20251020
  Serious: No
  Sender: Tarsus Pharmaceuticals
  Company Number: US-TARSUS PHARMACEUTICALS-TSP-US-2025-000515

PATIENT

DRUGS (7)
  1. XDEMVY [Suspect]
     Active Substance: LOTILANER
     Indication: Product used for unknown indication
     Dosage: 1 DROP, BID (INSTILL ONE DROP INTO AFFECTED EYE TWO TIMES DAILY)
     Route: 047
     Dates: start: 20250521, end: 20250529
  2. XDEMVY [Suspect]
     Active Substance: LOTILANER
     Dosage: 1 GTT DROPS, BID (INSTILL ONE DROP INTO AFFECTED EYE TWO TIMES DAILY)
     Route: 047
     Dates: start: 20250624
  3. DIENESTROL [Concomitant]
     Active Substance: DIENESTROL
     Indication: Product used for unknown indication
     Route: 065
  4. VITAMINS [Concomitant]
     Active Substance: VITAMINS
     Indication: Product used for unknown indication
     Route: 065
  5. MYLANTA [Concomitant]
     Active Substance: ALUMINUM HYDROXIDE\DIMETHICONE\MAGNESIUM HYDROXIDE
     Indication: Product used for unknown indication
     Route: 065
  6. ZYRTEC [Concomitant]
     Active Substance: CETIRIZINE HYDROCHLORIDE
     Indication: Product used for unknown indication
     Route: 065
  7. PRILOSEC [Concomitant]
     Active Substance: OMEPRAZOLE MAGNESIUM
     Indication: Product used for unknown indication
     Route: 065

REACTIONS (12)
  - Eye pain [Unknown]
  - Condition aggravated [Unknown]
  - Eye discharge [Unknown]
  - Dry eye [Unknown]
  - Eyelid margin crusting [Unknown]
  - Eye irritation [Unknown]
  - Wrong technique in product usage process [Unknown]
  - Suspected product contamination [Unknown]
  - Liquid product physical issue [Unknown]
  - Product storage error [Unknown]
  - Device leakage [Unknown]
  - Therapy interrupted [Unknown]

NARRATIVE: CASE EVENT DATE: 20250501
